FAERS Safety Report 5455329-5 (Version None)
Quarter: 2007Q3

REPORT INFORMATION
  Report Type: 
  Country: None (occurrence: None)
  Receive Date: 20070918
  Receipt Date: 20060911
  Transmission Date: 20080115
  Serious: Yes (Death)
  Sender: FDA-Public Use
  Company Number: US-BRISTOL-MYERS SQUIBB COMPANY-13507991

PATIENT
  Age: 84 Year
  Sex: Male

DRUGS (1)
  1. MEGACE [Suspect]
     Indication: NEOPLASM MALIGNANT

REACTIONS (1)
  - MALIGNANT NEOPLASM PROGRESSION [None]
